FAERS Safety Report 12924603 (Version 2)
Quarter: 2016Q4

REPORT INFORMATION
  Report Type: Spontaneous
  Country: US (occurrence: US)
  Receive Date: 20161109
  Receipt Date: 20161213
  Transmission Date: 20170207
  Serious: Yes (Congenital Anomaly, Other)
  Sender: FDA-Public Use
  Company Number: US-APOTEX-2014AP002830

PATIENT
  Sex: Female

DRUGS (1)
  1. PAXIL [Suspect]
     Active Substance: PAROXETINE HYDROCHLORIDE
     Indication: DEPRESSION
     Dosage: 20 MG, UNK
     Route: 064

REACTIONS (13)
  - Mitral valve incompetence [Not Recovered/Not Resolved]
  - Congenital anomaly [Not Recovered/Not Resolved]
  - Pulmonary valve stenosis [Not Recovered/Not Resolved]
  - Cardiac murmur [Unknown]
  - Atrial septal defect [Not Recovered/Not Resolved]
  - Foetal exposure during pregnancy [Unknown]
  - Quality of life decreased [Not Recovered/Not Resolved]
  - Pain [Not Recovered/Not Resolved]
  - Cardiac disorder [Unknown]
  - Cardiovascular disorder [Unknown]
  - Injury [Not Recovered/Not Resolved]
  - Anxiety [Unknown]
  - Dilatation ventricular [Unknown]

NARRATIVE: CASE EVENT DATE: 19961003
